FAERS Safety Report 25004700 (Version 1)
Quarter: 2025Q1

REPORT INFORMATION
  Report Type: Spontaneous
  Country: IN (occurrence: IN)
  Receive Date: 20250224
  Receipt Date: 20250224
  Transmission Date: 20250408
  Serious: Yes (Other)
  Sender: INSUD PHARMA
  Company Number: IN-INSUD PHARMA-2502IN01260

PATIENT

DRUGS (1)
  1. TESTOSTERONE [Suspect]
     Active Substance: TESTOSTERONE
     Indication: Hormone therapy
     Route: 065

REACTIONS (2)
  - Psychotic disorder [Recovering/Resolving]
  - Depression [Recovering/Resolving]
